FAERS Safety Report 7639058-5 (Version None)
Quarter: 2011Q3

REPORT INFORMATION
  Report Type: 
  Country: None (occurrence: None)
  Receive Date: 20110714
  Receipt Date: 20110626
  Transmission Date: 20111222
  Serious: Yes (Other)
  Sender: FDA-Public Use
  Company Number: WWISSUE-629

PATIENT
  Sex: Female

DRUGS (3)
  1. NORVASC [Concomitant]
  2. BYSTOLIC [Concomitant]
  3. LISINOPRIL [Suspect]
     Indication: BLOOD PRESSURE
     Dates: start: 20110101, end: 20110301

REACTIONS (1)
  - DRUG INEFFECTIVE [None]
